FAERS Safety Report 6909683-5 (Version None)
Quarter: 2010Q3

REPORT INFORMATION
  Report Type: 
  Country: None (occurrence: None)
  Receive Date: 20100805
  Receipt Date: 20100729
  Transmission Date: 20110219
  Serious: Yes (Other)
  Sender: FDA-Public Use
  Company Number: CA-AMGEN-QUU426138

PATIENT
  Sex: Female
  Weight: 136 kg

DRUGS (10)
  1. NPLATE [Suspect]
     Indication: IDIOPATHIC THROMBOCYTOPENIC PURPURA
     Route: 058
     Dates: start: 20100503
  2. TEGRETOL [Concomitant]
     Route: 048
     Dates: start: 19850101
  3. ARTHROTEC [Concomitant]
     Route: 048
     Dates: start: 20050101
  4. PANTOPRAZOLE [Concomitant]
     Route: 048
     Dates: start: 20050101
  5. EFFEXOR [Concomitant]
     Route: 048
     Dates: start: 20050101
  6. METFORMIN HCL [Concomitant]
     Route: 048
  7. OXYCONTIN [Concomitant]
     Route: 048
  8. DIOVAN [Concomitant]
     Dates: start: 20050101
  9. HYDROMORPHONE [Concomitant]
     Dates: start: 20080101
  10. ACTOS [Concomitant]
     Dates: start: 20050101

REACTIONS (4)
  - AORTIC OCCLUSION [None]
  - HEADACHE [None]
  - MYALGIA [None]
  - PAIN [None]
